FAERS Safety Report 5864406-6 (Version None)
Quarter: 2008Q3

REPORT INFORMATION
  Report Type: 
  Country: None (occurrence: None)
  Receive Date: 20080829
  Receipt Date: 20080819
  Transmission Date: 20090109
  Serious: Yes (Other)
  Sender: FDA-Public Use
  Company Number: BR-ELI_LILLY_AND_COMPANY-BR200808000102

PATIENT
  Age: 56 Year
  Sex: Male

DRUGS (4)
  1. CIALIS [Suspect]
     Indication: ERECTILE DYSFUNCTION
     Dosage: 20 MG, WEEKLY (1/W)
     Route: 048
     Dates: start: 20020101, end: 20080601
  2. CIALIS [Suspect]
     Dosage: 20 MG, WEEKLY (1/W)
     Route: 048
     Dates: start: 20080808
  3. DIOVAN [Concomitant]
     Indication: HYPERTENSION
     Dosage: 160 MG, UNKNOWN
     Route: 065
  4. AMLODIPINE [Concomitant]
     Indication: HYPERTENSION
     Dosage: UNK, UNKNOWN
     Route: 065

REACTIONS (2)
  - ARTERIAL OCCLUSIVE DISEASE [None]
  - CORONARY ARTERY BYPASS [None]
